FAERS Safety Report 17887313 (Version 1)
Quarter: 2020Q2

REPORT INFORMATION
  Report Type: Report from Study
  Country: None (occurrence: US)
  Receive Date: 20200612
  Receipt Date: 20200612
  Transmission Date: 20200714
  Serious: Yes (Other)
  Sender: FDA-Public Use
  Company Number: US-ABBVIE-20K-163-3436994-00

PATIENT
  Sex: Female

DRUGS (1)
  1. HUMIRA [Suspect]
     Active Substance: ADALIMUMAB
     Indication: RHEUMATOID ARTHRITIS
     Route: 058

REACTIONS (5)
  - Blindness unilateral [Not Recovered/Not Resolved]
  - Eye inflammation [Unknown]
  - Ocular vascular disorder [Unknown]
  - Emotional distress [Not Recovered/Not Resolved]
  - Ocular vasculitis [Unknown]
